FAERS Safety Report 10108580 (Version 2)
Quarter: 2014Q2

REPORT INFORMATION
  Report Type: Spontaneous
  Country: BR (occurrence: BR)
  Receive Date: 20140425
  Receipt Date: 20140425
  Transmission Date: 20141212
  Serious: Yes (Other)
  Sender: FDA-Public Use
  Company Number: BR-AMGEN INC.-BRASP2014021044

PATIENT
  Age: 62 Year
  Sex: Female
  Weight: 73 kg

DRUGS (8)
  1. ENBREL [Suspect]
     Indication: RHEUMATOID ARTHRITIS
     Dosage: 50 MG, ONCE WEEKLY
     Route: 065
     Dates: start: 20140224, end: 20140324
  2. OMEPRAZOLE [Concomitant]
     Dosage: 40 MG, DAILY
  3. METHOTREXATE [Concomitant]
     Dosage: 15 MG (6 TABLETS OF 2.5MG), ONCE WEEKLY
     Dates: start: 201309
  4. METICORTEN [Concomitant]
     Dosage: 5 MG, (ONE TABLET), EVERY OTHER DAY
     Dates: start: 2006
  5. FOLIC ACID [Concomitant]
     Dosage: 10 MG (TWO TABLETS OF 5MG), WEEKLY
     Dates: start: 201309
  6. ATENOLOL [Concomitant]
     Dosage: 25 MG (ONE TABLET), DAILY
     Dates: start: 2013
  7. LOSARTAN [Concomitant]
     Dosage: 50 MG (ONE TABLET), DAILY
     Dates: start: 2013
  8. HYDROCHLOROTHIAZIDE [Concomitant]
     Dosage: 25 MG (ONE TABLET), DAILY
     Dates: start: 2013

REACTIONS (10)
  - Pyrexia [Unknown]
  - Dengue fever [Unknown]
  - Hypersensitivity [Unknown]
  - Injection site mass [Unknown]
  - Injection site haematoma [Unknown]
  - Injection site warmth [Unknown]
  - Injection site pain [Unknown]
  - Injection site discolouration [Unknown]
  - Injection site reaction [Unknown]
  - Injection site pruritus [Unknown]
